FAERS Safety Report 11500034 (Version 1)
Quarter: 2015Q3

REPORT INFORMATION
  Report Type: Spontaneous
  Country: IT (occurrence: IT)
  Receive Date: 20150914
  Receipt Date: 20150914
  Transmission Date: 20151125
  Serious: Yes (Hospitalization, Other)
  Sender: FDA-Public Use
  Company Number: IT-AMGEN-ITASP2015093637

PATIENT
  Age: 56 Year
  Sex: Male
  Weight: 100 kg

DRUGS (3)
  1. FLUOROURACIL. [Concomitant]
     Active Substance: FLUOROURACIL
     Indication: COLON CANCER STAGE IV
     Dosage: 1200 MG/M2, UNK
     Route: 042
     Dates: start: 20150721, end: 20150723
  2. VECTIBIX [Suspect]
     Active Substance: PANITUMUMAB
     Indication: COLON CANCER STAGE IV
     Dosage: 6 MG/KG, CYCLIC
     Route: 042
     Dates: start: 20150721, end: 20150721
  3. IRINOTECAN [Concomitant]
     Active Substance: IRINOTECAN
     Indication: COLON CANCER STAGE IV
     Dosage: 180 MG/M2, UNK
     Route: 042
     Dates: start: 20150721, end: 20150721

REACTIONS (4)
  - Folliculitis [Recovered/Resolved with Sequelae]
  - Klebsiella sepsis [Recovered/Resolved with Sequelae]
  - Skin reaction [Recovered/Resolved with Sequelae]
  - Central venous catheter removal [Unknown]

NARRATIVE: CASE EVENT DATE: 2015
